FAERS Safety Report 9324456 (Version 3)
Quarter: 2013Q3

REPORT INFORMATION
  Report Type: Spontaneous
  Country: DE (occurrence: DE)
  Receive Date: 20130603
  Receipt Date: 20130809
  Transmission Date: 20140515
  Serious: Yes (Hospitalization)
  Sender: FDA-Public Use
  Company Number: DE-BAYER-2013-064818

PATIENT
  Age: 73 Year
  Sex: Female

DRUGS (2)
  1. GADOVIST [Suspect]
     Indication: NUCLEAR MAGNETIC RESONANCE IMAGING BRAIN
     Dosage: 7.5 ML, ONCE
     Dates: start: 20130424, end: 20130424
  2. GADOVIST [Suspect]
     Indication: HEAD DISCOMFORT

REACTIONS (8)
  - Syncope [Recovered/Resolved]
  - Contrast media allergy [Recovering/Resolving]
  - Rash erythematous [Recovering/Resolving]
  - Skin discolouration [Recovering/Resolving]
  - Rosacea [None]
  - Hypersensitivity vasculitis [Recovering/Resolving]
  - Infection [None]
  - Skin exfoliation [None]
